FAERS Safety Report 11231512 (Version 1)
Quarter: 2015Q3

REPORT INFORMATION
  Report Type: Spontaneous
  Country: BR (occurrence: BR)
  Receive Date: 20150701
  Receipt Date: 20150701
  Transmission Date: 20151125
  Serious: Yes (Other)
  Sender: FDA-Public Use
  Company Number: PHHY2015BR075483

PATIENT
  Age: 54 Year
  Sex: Female

DRUGS (2)
  1. RAZAPINA [Suspect]
     Active Substance: MIRTAZAPINE
     Indication: DEPRESSION
     Dosage: 15 MG, QD
     Route: 048
     Dates: start: 20150609
  2. RAZAPINA [Suspect]
     Active Substance: MIRTAZAPINE
     Indication: INSOMNIA

REACTIONS (5)
  - Drug administration error [Unknown]
  - Somnolence [Unknown]
  - Abnormal dreams [Unknown]
  - Nightmare [Unknown]
  - Hallucination [Unknown]
